FAERS Safety Report 7120938-4 (Version None)
Quarter: 2010Q4

REPORT INFORMATION
  Report Type: 
  Country: None (occurrence: None)
  Receive Date: 20101124
  Receipt Date: 20101117
  Transmission Date: 20110411
  Serious: Yes (Hospitalization)
  Sender: FDA-Public Use
  Company Number: AR-B.I. PHARMACEUTICALS,INC./RIDGEFIELD-2010-RA-00463RA

PATIENT
  Age: 69 Year
  Sex: Female

DRUGS (7)
  1. BEROTEC [Suspect]
     Indication: ASTHMA
     Route: 055
     Dates: end: 20100101
  2. SPIRIVA [Suspect]
     Indication: PNEUMONIA
     Dosage: 18 MCG
     Route: 055
     Dates: start: 20040101
  3. COMBIVENT [Suspect]
     Indication: PNEUMONIA
     Dosage: 45 DROPS AS NEBULIZATION DAILY
     Route: 055
  4. SYMBICORT [Concomitant]
     Indication: PNEUMONIA
     Route: 055
     Dates: start: 20040101
  5. LEXOTANIL [Concomitant]
     Indication: STRESS
     Route: 048
  6. RIVOTRIL [Concomitant]
     Indication: STRESS
     Dosage: 0.5 MG
     Route: 048
  7. LOTRIAL [Concomitant]
     Indication: CARDIAC DISORDER
     Dosage: 20 MG
     Route: 048

REACTIONS (1)
  - PNEUMONIA [None]
